FAERS Safety Report 14836472 (Version 2)
Quarter: 2019Q4

REPORT INFORMATION
  Report Type: Report from Study
  Country: US (occurrence: US)
  Receive Date: 20180502
  Receipt Date: 20191217
  Transmission Date: 20200122
  Serious: Yes (Other)
  Sender: FDA-Public Use
  Company Number: US-ASTELLAS-2018US014327

PATIENT
  Age: 73 Year
  Sex: Male

DRUGS (2)
  1. ENZALUTAMIDE [Suspect]
     Active Substance: ENZALUTAMIDE
     Indication: PROSTATE CANCER
     Route: 048
     Dates: start: 20180118
  2. ENZALUTAMIDE [Suspect]
     Active Substance: ENZALUTAMIDE
     Route: 048

REACTIONS (8)
  - Arthritis [Not Recovered/Not Resolved]
  - Blood pressure increased [Unknown]
  - Asthenia [Unknown]
  - Vision blurred [Unknown]
  - Anxiety [Unknown]
  - Peripheral swelling [Not Recovered/Not Resolved]
  - Dizziness [Unknown]
  - Product use complaint [Unknown]

NARRATIVE: CASE EVENT DATE: 20180301
